FAERS Safety Report 5338209-5 (Version None)
Quarter: 2007Q2

REPORT INFORMATION
  Report Type: 
  Country: None (occurrence: None)
  Receive Date: 20070327
  Receipt Date: 20061208
  Transmission Date: 20071010
  Serious: No
  Sender: FDA-Public Use
  Company Number: 233797

PATIENT
  Age: 62 Year
  Sex: Female
  Weight: 72.6 kg

DRUGS (3)
  1. AVASTIN [Suspect]
     Indication: BREAST CANCER
     Dosage: 750 MG, Q14D, INTRAVENOUS
     Route: 042
     Dates: start: 20060401, end: 20061117
  2. TAXOTERE [Concomitant]
  3. THYROID TAB [Concomitant]

REACTIONS (2)
  - EPISTAXIS [None]
  - HEADACHE [None]
